FAERS Safety Report 22639660 (Version 1)
Quarter: 2023Q2

REPORT INFORMATION
  Report Type: Spontaneous
  Country: RS (occurrence: RS)
  Receive Date: 20230626
  Receipt Date: 20230626
  Transmission Date: 20230721
  Serious: Yes (Death, Hospitalization)
  Sender: FDA-Public Use
  Company Number: RS-STRIDES ARCOLAB LIMITED-2023SP009994

PATIENT
  Age: 65 Year
  Sex: Male

DRUGS (8)
  1. PREDNISOLONE [Suspect]
     Active Substance: PREDNISOLONE
     Indication: Cerebral amyloid angiopathy
     Dosage: 1 MILLIGRAM/KILOGRAM, UNKNOWN
     Route: 048
  2. PREDNISOLONE [Suspect]
     Active Substance: PREDNISOLONE
     Indication: Inflammation
  3. AZATHIOPRINE [Suspect]
     Active Substance: AZATHIOPRINE
     Indication: Cerebral amyloid angiopathy
     Dosage: 50 MILLIGRAM PER DAY
     Route: 048
  4. AZATHIOPRINE [Suspect]
     Active Substance: AZATHIOPRINE
     Indication: Inflammation
  5. LEVETIRACETAM [Suspect]
     Active Substance: LEVETIRACETAM
     Indication: Epilepsy
     Dosage: 1000 MILLIGRAM, TID (THREE TIMES A DAY)
     Route: 065
  6. METHYLPREDNISOLONE [Suspect]
     Active Substance: METHYLPREDNISOLONE
     Indication: Cerebral amyloid angiopathy
     Dosage: 1 GRAM PER DAY WAS INITIATED FOR 5 DAYS
     Route: 065
  7. METHYLPREDNISOLONE [Suspect]
     Active Substance: METHYLPREDNISOLONE
     Indication: Inflammation
  8. MIDAZOLAM [Suspect]
     Active Substance: MIDAZOLAM
     Indication: Epilepsy
     Dosage: 30 MILLIGRAM, UNKNOWN
     Route: 042

REACTIONS (9)
  - Cardiac arrest [Fatal]
  - Respiratory failure [Fatal]
  - Gastrointestinal infection [Fatal]
  - Nosocomial infection [Fatal]
  - Clostridium difficile infection [Fatal]
  - Systemic infection [Fatal]
  - Drug ineffective [Fatal]
  - Disease progression [Fatal]
  - Off label use [Unknown]
